FAERS Safety Report 8671397 (Version 6)
Quarter: 2014Q1

REPORT INFORMATION
  Report Type: Spontaneous
  Country: US (occurrence: US)
  Receive Date: 20120718
  Receipt Date: 20140319
  Transmission Date: 20141002
  Serious: Yes (Hospitalization)
  Sender: FDA-Public Use
  Company Number: US-GLAXOSMITHKLINE-A0984627A

PATIENT
  Age: 55 Year
  Sex: Male
  Weight: 109.1 kg

DRUGS (2)
  1. AVANDAMET [Suspect]
     Indication: DIABETES MELLITUS
     Route: 048
     Dates: start: 200411
  2. AVANDIA [Suspect]
     Indication: DIABETES MELLITUS
     Route: 048
     Dates: start: 2005, end: 201010

REACTIONS (7)
  - Arterial occlusive disease [Recovering/Resolving]
  - Coronary artery bypass [Unknown]
  - Angina unstable [Unknown]
  - Coronary artery stenosis [Unknown]
  - Hypercoagulation [Unknown]
  - Atrial fibrillation [Unknown]
  - Myocardial infarction [Unknown]
